FAERS Safety Report 13882828 (Version 3)
Quarter: 2017Q4

REPORT INFORMATION
  Report Type: Spontaneous
  Country: FR (occurrence: FR)
  Receive Date: 20170818
  Receipt Date: 20171013
  Transmission Date: 20180320
  Serious: Yes (Hospitalization, Other)
  Sender: FDA-Public Use
  Company Number: FR-ELI_LILLY_AND_COMPANY-FR201708004827

PATIENT
  Age: 41 Year
  Sex: Female

DRUGS (17)
  1. ZELITREX [Concomitant]
     Active Substance: VALACYCLOVIR HYDROCHLORIDE
     Dosage: UNK, UNKNOWN
     Route: 065
  2. BACTRIM [Concomitant]
     Active Substance: SULFAMETHOXAZOLE\TRIMETHOPRIM
     Dosage: UNK, UNKNOWN
     Route: 065
  3. PARACETAMOL [Concomitant]
     Active Substance: ACETAMINOPHEN
     Dosage: UNK, UNKNOWN
     Route: 065
  4. UVEDOSE [Concomitant]
     Active Substance: CHOLECALCIFEROL
     Dosage: UNK, UNKNOWN
     Route: 065
  5. NAVELBINE [Suspect]
     Active Substance: VINORELBINE TARTRATE
     Dosage: 14.4 MG, UNK
     Route: 042
     Dates: start: 20170706, end: 20170713
  6. GEMZAR [Suspect]
     Active Substance: GEMCITABINE HYDROCHLORIDE
     Indication: B-CELL LYMPHOMA
     Dosage: 1440 MG, CYCLICAL
     Route: 042
     Dates: start: 20170519
  7. DOXORUBICINE TEVA [Suspect]
     Active Substance: DOXORUBICIN
     Dosage: 10.8 MG, UNK
     Route: 042
     Dates: start: 20170706, end: 20170713
  8. BARACLUDE [Concomitant]
     Active Substance: ENTECAVIR
     Dosage: UNK, UNKNOWN
     Route: 065
  9. GEMZAR [Suspect]
     Active Substance: GEMCITABINE HYDROCHLORIDE
     Dosage: 720 MG, UNK
     Route: 042
     Dates: start: 20170706, end: 20170713
  10. PROGRAF [Concomitant]
     Active Substance: TACROLIMUS\TACROLIMUS ANHYDROUS
     Dosage: UNK, UNKNOWN
     Route: 065
  11. FOLINORAL [Concomitant]
     Active Substance: LEUCOVORIN CALCIUM
     Dosage: UNK, UNKNOWN
     Route: 065
  12. NAVELBINE [Suspect]
     Active Substance: VINORELBINE TARTRATE
     Indication: B-CELL LYMPHOMA
     Dosage: 28.8 MG, CYCLICAL
     Route: 042
     Dates: start: 20170519
  13. ARANESP [Concomitant]
     Active Substance: DARBEPOETIN ALFA
     Dosage: UNK, UNKNOWN
     Route: 065
  14. MIMPARA [Concomitant]
     Active Substance: CINACALCET HYDROCHLORIDE
     Dosage: UNK, UNKNOWN
     Route: 065
  15. DOXORUBICINE TEVA [Suspect]
     Active Substance: DOXORUBICIN
     Indication: B-CELL LYMPHOMA
     Dosage: 21.6 MG, CYCLICAL
     Route: 042
     Dates: start: 20170519
  16. SOLUPRED                           /00016201/ [Concomitant]
     Active Substance: PREDNISOLONE
     Dosage: UNK, UNKNOWN
     Route: 065
  17. INEXIUM                            /01479302/ [Concomitant]
     Active Substance: ESOMEPRAZOLE MAGNESIUM
     Dosage: UNK, UNKNOWN
     Route: 065

REACTIONS (14)
  - Proteinuria [Not Recovered/Not Resolved]
  - Mucosal inflammation [Recovered/Resolved]
  - Neutropenia [Recovered/Resolved]
  - Thrombocytopenia [Recovered/Resolved]
  - Bone marrow failure [Unknown]
  - Dehydration [Unknown]
  - Decreased appetite [Recovered/Resolved]
  - Agranulocytosis [Recovered/Resolved]
  - Mucosal inflammation [Unknown]
  - Transplant rejection [Unknown]
  - Renal failure [Unknown]
  - Acute kidney injury [Not Recovered/Not Resolved]
  - Dehydration [Recovered/Resolved]
  - Off label use [Unknown]

NARRATIVE: CASE EVENT DATE: 20170519
